FAERS Safety Report 6862451-5 (Version None)
Quarter: 2010Q3

REPORT INFORMATION
  Report Type: 
  Country: None (occurrence: None)
  Receive Date: 20100719
  Receipt Date: 20100705
  Transmission Date: 20110219
  Serious: Yes (Other)
  Sender: FDA-Public Use
  Company Number: 2010RR-33423

PATIENT
  Age: 79 Year
  Sex: Male

DRUGS (8)
  1. GABAPENTIN [Suspect]
     Indication: MULTIPLE MYELOMA
     Dosage: 100MG, 1 IN 1 DAY
     Dates: start: 20100224
  2. GABAPENTIN [Suspect]
     Indication: PAIN
     Dosage: 300MG, 1 IN 1 DAY ORAL USE
     Route: 048
     Dates: end: 20100307
  3. ATENOLOL [Concomitant]
  4. FENTANYL [Concomitant]
  5. FINASTERIDE [Concomitant]
  6. LISINOPRIL [Concomitant]
  7. OMEPRAZOLE [Concomitant]
  8. PREGABALIN [Concomitant]

REACTIONS (2)
  - LEUKOPENIA [None]
  - THROMBOCYTOPENIA [None]
